FAERS Safety Report 13367555 (Version 3)
Quarter: 2017Q3

REPORT INFORMATION
  Report Type: Spontaneous
  Country: US (occurrence: US)
  Receive Date: 20170324
  Receipt Date: 20170711
  Transmission Date: 20171127
  Serious: No
  Sender: FDA-Public Use
  Company Number: US-PFIZER INC-2017125355

PATIENT
  Age: 43 Year
  Sex: Female
  Weight: 112 kg

DRUGS (16)
  1. FOSAMAX [Concomitant]
     Active Substance: ALENDRONATE SODIUM
     Indication: CARNITINE DEFICIENCY
     Dosage: 70 MG, UNK (EVERY 7 DAYS)
     Route: 048
  2. LEVOTHROID [Concomitant]
     Active Substance: LEVOTHYROXINE SODIUM
     Dosage: 50 UG, 1X/DAY [1 TABLET BY MOUTH EVERY MORNING]
     Route: 048
     Dates: start: 20150908
  3. GENOTROPIN MQ [Suspect]
     Active Substance: SOMATROPIN
     Indication: GROWTH HORMONE DEFICIENCY
  4. GENOTROPIN MQ [Suspect]
     Active Substance: SOMATROPIN
     Indication: HYPOGONADISM
  5. GENOTROPIN MQ [Suspect]
     Active Substance: SOMATROPIN
     Indication: PRADER-WILLI SYNDROME
     Dosage: 0.4 MG, DAILY (SKIN NIGHTLY AT BEDTIME)
     Route: 058
     Dates: start: 2009
  6. ECONAZOLE NITRATE. [Concomitant]
     Active Substance: ECONAZOLE NITRATE
     Dosage: UNK UNK, DAILY (APPLY TOPICALLY DAILY TO RIGHT FOOT AND TOENAILS)
     Route: 061
     Dates: start: 20150908
  7. CRESTOR [Concomitant]
     Active Substance: ROSUVASTATIN CALCIUM
     Dosage: 20 MG, DAILY
     Route: 048
  8. VITAMIN D [Concomitant]
     Active Substance: CHOLECALCIFEROL
     Dosage: UNK
     Route: 048
  9. GENOTROPIN MQ [Suspect]
     Active Substance: SOMATROPIN
     Indication: CARNITINE DEFICIENCY
  10. GENOTROPIN MQ [Suspect]
     Active Substance: SOMATROPIN
     Indication: HYPOPITUITARISM
  11. SYNTHROID [Concomitant]
     Active Substance: LEVOTHYROXINE SODIUM
     Dosage: 50 UG, 1X/DAY (TAKE 1 TABLET BY MOUTH EVERY MORNING)
     Route: 048
     Dates: start: 20150908
  12. COLACE [Concomitant]
     Active Substance: DOCUSATE SODIUM
     Indication: CONSTIPATION
     Dosage: 50 MG, AS NEEDED (MOUTH 2 TIMES DAILY AS NEEDED )
     Route: 048
     Dates: start: 20160105
  13. CARNITOR [Concomitant]
     Active Substance: LEVOCARNITINE
     Dosage: 990 MG, DAILY
     Route: 048
     Dates: start: 20160705
  14. VALTREX [Concomitant]
     Active Substance: VALACYCLOVIR HYDROCHLORIDE
     Dosage: 500 MG, 2X/DAY
     Route: 048
  15. FOSAMAX [Concomitant]
     Active Substance: ALENDRONATE SODIUM
     Indication: OSTEOPOROSIS
  16. LIPITOR [Concomitant]
     Active Substance: ATORVASTATIN CALCIUM
     Dosage: 10 MG, DAILY
     Route: 048
     Dates: start: 20150908

REACTIONS (3)
  - Drug dose omission [Unknown]
  - Oedema [Not Recovered/Not Resolved]
  - Hypoglycaemia [Unknown]

NARRATIVE: CASE EVENT DATE: 201701
